FAERS Safety Report 9452929 (Version 1)
Quarter: 2013Q3

REPORT INFORMATION
  Report Type: Spontaneous
  Country: GB (occurrence: GB)
  Receive Date: 20130812
  Receipt Date: 20130812
  Transmission Date: 20140515
  Serious: Yes (Other)
  Sender: FDA-Public Use
  Company Number: GB-JNJFOC-20130718510

PATIENT
  Age: 62 Year
  Sex: Female

DRUGS (2)
  1. SIMPONI [Suspect]
     Indication: PRODUCT USED FOR UNKNOWN INDICATION
     Route: 058
     Dates: start: 20130520
  2. SIMPONI [Suspect]
     Indication: PRODUCT USED FOR UNKNOWN INDICATION
     Route: 058

REACTIONS (6)
  - Swollen tongue [Unknown]
  - Sensation of foreign body [Unknown]
  - Dysphagia [Unknown]
  - Tongue disorder [Unknown]
  - Stomatitis [Unknown]
  - Dry mouth [Unknown]
